FAERS Safety Report 9351032 (Version 3)
Quarter: 2013Q3

REPORT INFORMATION
  Report Type: Report from Study
  Country: IE (occurrence: IE)
  Receive Date: 20130617
  Receipt Date: 20130725
  Transmission Date: 20140515
  Serious: Yes (Other)
  Sender: FDA-Public Use
  Company Number: IE-ROCHE-1236161

PATIENT
  Age: 65 Year
  Sex: Female

DRUGS (10)
  1. TRASTUZUMAB [Suspect]
     Indication: HER-2 POSITIVE BREAST CANCER
     Route: 065
  2. TRASTUZUMAB [Suspect]
     Route: 065
     Dates: start: 200807, end: 200812
  3. TRASTUZUMAB [Suspect]
     Route: 065
     Dates: start: 201201, end: 201212
  4. TRASTUZUMAB [Suspect]
     Route: 065
     Dates: start: 201212, end: 201303
  5. CAPECITABINE [Suspect]
     Indication: HER-2 POSITIVE BREAST CANCER
     Route: 065
     Dates: end: 201211
  6. LAPATINIB [Suspect]
     Indication: HER-2 POSITIVE BREAST CANCER
     Route: 065
  7. LAPATINIB [Suspect]
     Route: 065
     Dates: start: 201212, end: 201303
  8. PACLITAXEL [Suspect]
     Indication: HER-2 POSITIVE BREAST CANCER
     Route: 065
     Dates: start: 200807, end: 200812
  9. VINORELBINE TARTRATE [Suspect]
     Indication: HER-2 POSITIVE BREAST CANCER
     Route: 065
     Dates: start: 201201, end: 201212
  10. LETROZOLE [Suspect]
     Indication: HER-2 POSITIVE BREAST CANCER
     Route: 065
     Dates: start: 201212, end: 201303

REACTIONS (3)
  - Aspartate aminotransferase increased [Unknown]
  - Blood alkaline phosphatase increased [Unknown]
  - Disease progression [Unknown]
